FAERS Safety Report 10017175 (Version 2)
Quarter: 2014Q2

REPORT INFORMATION
  Report Type: Other
  Country: IT (occurrence: IT)
  Receive Date: 20140318
  Receipt Date: 20140401
  Transmission Date: 20141212
  Serious: Yes (Hospitalization)
  Sender: FDA-Public Use
  Company Number: IT-SUN PHARMACEUTICAL INDUSTRIES LTD-2014SUN00624

PATIENT
  Sex: 0

DRUGS (5)
  1. OXALIPLATINO SUN 5 MG/ML, CONCENTRATO PER SOLUZIONE PER INFUSIONE [Suspect]
     Indication: COLON CANCER
     Dosage: 217.1 MG, CYCLIC
     Route: 042
     Dates: start: 20131203, end: 20140228
  2. RANIDIL [Concomitant]
     Dosage: 50 MG, UNK
     Route: 042
  3. XELODA [Concomitant]
     Indication: COLON CANCER
     Dosage: 46760 MG, UNK
     Route: 048
     Dates: start: 20131203, end: 20140228
  4. SOLDESAM [Concomitant]
     Dosage: 4 MG, UNK
     Route: 042
  5. TRIMETON [Concomitant]
     Dosage: 10 MG, UNK
     Route: 030

REACTIONS (3)
  - Throat tightness [Recovered/Resolved]
  - Paraesthesia [Recovered/Resolved]
  - Visual acuity reduced [Recovered/Resolved]
